FAERS Safety Report 18113385 (Version 1)
Quarter: 2020Q3

REPORT INFORMATION
  Report Type: Spontaneous
  Country: BR (occurrence: BR)
  Receive Date: 20200805
  Receipt Date: 20200805
  Transmission Date: 20201103
  Serious: Yes (Other)
  Sender: FDA-Public Use
  Company Number: BR-EMD SERONO-9178036

PATIENT
  Age: 53 Year
  Sex: Female

DRUGS (1)
  1. GLIFAGE [Suspect]
     Active Substance: METFORMIN HYDROCHLORIDE
     Indication: DIABETES MELLITUS
     Dosage: NEW TABLETS
     Route: 048
     Dates: start: 20190628

REACTIONS (6)
  - Suspected COVID-19 [Unknown]
  - Dyspnoea [Unknown]
  - Product shape issue [Unknown]
  - Product use complaint [Unknown]
  - Foreign body in throat [Unknown]
  - Chest pain [Unknown]

NARRATIVE: CASE EVENT DATE: 202007
